FAERS Safety Report 5449571-7 (Version None)
Quarter: 2007Q3

REPORT INFORMATION
  Report Type: 
  Country: None (occurrence: None)
  Receive Date: 20070910
  Receipt Date: 20070910
  Transmission Date: 20080115
  Serious: No
  Sender: FDA-Public Use
  Company Number: None

PATIENT
  Age: 48 Year
  Sex: Male
  Weight: 53.5244 kg

DRUGS (9)
  1. ERBITUX [Suspect]
     Indication: NEOPLASM MALIGNANT
     Dosage: 250MG/M2, IV,WKLY
     Route: 042
     Dates: start: 20070417
  2. FENTANYL [Concomitant]
  3. ZOLPIDEM TARTRATE [Concomitant]
  4. PHENYTOIN [Concomitant]
  5. ESOMEPRAZOLE MAGNESIUM [Concomitant]
  6. LABETALOL HCL [Concomitant]
  7. AMLODOPINE [Concomitant]
  8. LISINOPRIL [Concomitant]
  9. VICODIN [Concomitant]

REACTIONS (2)
  - GRAND MAL CONVULSION [None]
  - HYPERTENSION [None]
